FAERS Safety Report 4628139-6 (Version None)
Quarter: 2005Q2

REPORT INFORMATION
  Report Type: 
  Country: None (occurrence: None)
  Receive Date: 20050404
  Receipt Date: 20050322
  Transmission Date: 20051028
  Serious: Yes (Other)
  Sender: FDA-Public Use
  Company Number: 2005037491

PATIENT
  Age: 72 Year
  Sex: Male

DRUGS (2)
  1. SOLU-MEDROL [Suspect]
     Indication: ACUTE RESPIRATORY DISTRESS SYNDROME
     Dosage: 1 GRAM (1 IN 1 D)
  2. INSULIN [Concomitant]

REACTIONS (26)
  - ACETABULUM FRACTURE [None]
  - ACUTE MYOCARDIAL INFARCTION [None]
  - ACUTE RESPIRATORY DISTRESS SYNDROME [None]
  - ANAEMIA [None]
  - ANGIOGRAM ABNORMAL [None]
  - ASCITES [None]
  - BILE DUCT STONE [None]
  - BLOOD GLUCOSE INCREASED [None]
  - CHOLECYSTITIS ACUTE [None]
  - CHOLECYSTITIS INFECTIVE [None]
  - CITROBACTER INFECTION [None]
  - FALL [None]
  - FRACTURE [None]
  - FRACTURED ISCHIUM [None]
  - GALLBLADDER ENLARGEMENT [None]
  - GALLBLADDER PERFORATION [None]
  - HYPERTROPHY [None]
  - ILIAC ARTERY EMBOLISM [None]
  - ILIUM FRACTURE [None]
  - INFLAMMATION [None]
  - PELVIC FRACTURE [None]
  - PELVIC ORGAN INJURY [None]
  - PERITONITIS [None]
  - RETROPERITONEAL HAEMATOMA [None]
  - STAPHYLOCOCCAL INFECTION [None]
  - TENDERNESS [None]
